FAERS Safety Report 21822636 (Version 1)
Quarter: 2023Q1

REPORT INFORMATION
  Report Type: Spontaneous
  Country: GB (occurrence: GB)
  Receive Date: 20230105
  Receipt Date: 20230105
  Transmission Date: 20230418
  Serious: Yes (Disabling, Other)
  Sender: FDA-Public Use
  Company Number: GB-MHRA-TPP28581625C7793991YC1670933046229

PATIENT
  Age: 17 Year
  Sex: Female
  Weight: 64 kg

DRUGS (3)
  1. AMOXICILLIN [Suspect]
     Active Substance: AMOXICILLIN
     Indication: Ill-defined disorder
     Dosage: UNK
     Route: 065
     Dates: start: 20221212
  2. DOXYCYCLINE [Concomitant]
     Active Substance: DOXYCYCLINE
     Indication: Ill-defined disorder
     Dosage: TWO NOW THEN ONE DAILY
     Route: 065
     Dates: start: 20221212
  3. LEVEST [Concomitant]
     Indication: Ill-defined disorder
     Dosage: TAKE ONE AS DIRECTED
     Route: 065
     Dates: start: 20220922

REACTIONS (4)
  - Nausea [Recovered/Resolved]
  - Vomiting [Unknown]
  - Tremor [Unknown]
  - Dizziness [Unknown]

NARRATIVE: CASE EVENT DATE: 20221213
